FAERS Safety Report 10225436 (Version 1)
Quarter: 2014Q2

REPORT INFORMATION
  Report Type: Spontaneous
  Country: DE (occurrence: DE)
  Receive Date: 20140609
  Receipt Date: 20140609
  Transmission Date: 20141212
  Serious: Yes (Death, Hospitalization)
  Sender: FDA-Public Use
  Company Number: DE-WATSON-2013-25390

PATIENT
  Age: 69 Year
  Sex: Male

DRUGS (4)
  1. SIMVASTATIN (UNKNOWN) [Suspect]
     Indication: CORONARY ARTERY DISEASE
     Dosage: 80 MG, UNK
     Route: 048
  2. ATORVASTATIN (UNKNOWN) [Suspect]
     Indication: CORONARY ARTERY DISEASE
     Dosage: 80 MG, UNK
     Route: 048
  3. TORASEMID [Concomitant]
     Indication: PRODUCT USED FOR UNKNOWN INDICATION
     Dosage: 10 MG, UNK
     Route: 048
  4. ACETYLSALICYLIC ACID [Concomitant]
     Indication: CORONARY ARTERY DISEASE
     Route: 048

REACTIONS (4)
  - Overdose [Fatal]
  - Rhabdomyolysis [Fatal]
  - Renal failure acute [Fatal]
  - Drug interaction [Fatal]
